FAERS Safety Report 18116256 (Version 3)
Quarter: 2020Q3

REPORT INFORMATION
  Report Type: Spontaneous
  Country: US (occurrence: US)
  Receive Date: 20200805
  Receipt Date: 20200826
  Transmission Date: 20201103
  Serious: No
  Sender: FDA-Public Use
  Company Number: US-009507513-2008USA000703

PATIENT
  Age: 33 Year
  Sex: Female
  Weight: 92.52 kg

DRUGS (2)
  1. NEXPLANON [Suspect]
     Active Substance: ETONOGESTREL
     Indication: MENORRHAGIA
  2. NEXPLANON [Suspect]
     Active Substance: ETONOGESTREL
     Indication: CONTRACEPTION
     Dosage: 1 IMPLANT IN THE LEFT ARM, 3 YEARS
     Route: 059
     Dates: start: 20170601, end: 20200730

REACTIONS (9)
  - Implant site fibrosis [Recovering/Resolving]
  - Incorrect product administration duration [Unknown]
  - Pain in extremity [Recovering/Resolving]
  - Implant site pruritus [Unknown]
  - Irritability [Unknown]
  - Device breakage [Recovered/Resolved]
  - Implant site scar [Unknown]
  - Complication of device removal [Recovered/Resolved]
  - Product use in unapproved indication [Unknown]

NARRATIVE: CASE EVENT DATE: 20170601
